FAERS Safety Report 11258478 (Version 1)
Quarter: 2015Q3

REPORT INFORMATION
  Report Type: Spontaneous
  Country: FR (occurrence: FR)
  Receive Date: 20150710
  Receipt Date: 20150710
  Transmission Date: 20151125
  Serious: Yes (Hospitalization, Disabling, Other)
  Sender: FDA-Public Use
  Company Number: FR-ASTRAZENECA-2015SE66609

PATIENT
  Age: 15514 Day
  Sex: Female

DRUGS (1)
  1. XEROQUEL [Suspect]
     Active Substance: QUETIAPINE FUMARATE
     Route: 048
     Dates: start: 201208, end: 20141123

REACTIONS (5)
  - Pancreatitis acute [Recovered/Resolved with Sequelae]
  - Type 1 diabetes mellitus [Not Recovered/Not Resolved]
  - Mesenteric vein thrombosis [Unknown]
  - Splenic infarction [Unknown]
  - Splenic vein thrombosis [Unknown]

NARRATIVE: CASE EVENT DATE: 20141123
